FAERS Safety Report 8345456-7 (Version None)
Quarter: 2012Q2

REPORT INFORMATION
  Report Type: 
  Country: None (occurrence: None)
  Receive Date: 20120508
  Receipt Date: 20120430
  Transmission Date: 20120825
  Serious: Yes (Hospitalization)
  Sender: FDA-Public Use
  Company Number: US-MYLANLABS-2012S1006561

PATIENT
  Age: 80 Year
  Sex: Male
  Weight: 90.72 kg

DRUGS (13)
  1. METOPROLOL TARTRATE [Suspect]
     Route: 048
     Dates: start: 20120322, end: 20120326
  2. METOPROLOL TARTRATE [Suspect]
     Route: 048
     Dates: start: 20120313, end: 20120301
  3. METOPROLOL TARTRATE [Suspect]
     Indication: EXTRASYSTOLES
     Route: 048
  4. OMEPRAZOLE [Concomitant]
     Indication: GASTRIC ULCER
     Route: 048
  5. LOSARTAN POTASSIUM [Concomitant]
     Indication: BLOOD PRESSURE INCREASED
     Route: 048
  6. AMLODIPINE BESYLATE [Suspect]
     Dates: start: 20120305, end: 20120312
  7. GLIPIZIDE [Concomitant]
     Indication: DIABETES MELLITUS
     Route: 048
  8. LEVOTHYROXINE SODIUM [Concomitant]
     Indication: THYROID DISORDER
     Route: 048
  9. ASPIRIN [Suspect]
     Dates: start: 20120313, end: 20120301
  10. LOVENOX [Suspect]
     Dates: start: 20120313, end: 20120301
  11. PRAVASTATIN [Suspect]
     Dates: start: 20110601
  12. METOPROLOL TARTRATE [Suspect]
     Route: 048
     Dates: start: 20120320, end: 20120321
  13. ASPIRIN [Concomitant]
     Indication: ANTIPLATELET THERAPY
     Route: 048

REACTIONS (26)
  - BRONCHOSPASM [None]
  - WHEEZING [None]
  - HAEMORRHAGE [None]
  - DYSARTHRIA [None]
  - OEDEMA PERIPHERAL [None]
  - TACHYCARDIA [None]
  - SOMNOLENCE [None]
  - PSORIASIS [None]
  - PAIN IN EXTREMITY [None]
  - ASTHENIA [None]
  - DECREASED APPETITE [None]
  - BRADYCARDIA [None]
  - SYNCOPE [None]
  - HALLUCINATION, VISUAL [None]
  - RASH PRURITIC [None]
  - HYPOTENSION [None]
  - CONFUSIONAL STATE [None]
  - COORDINATION ABNORMAL [None]
  - PALLOR [None]
  - MUSCLE TIGHTNESS [None]
  - CYANOSIS [None]
  - DYSPNOEA [None]
  - FATIGUE [None]
  - HIGH DENSITY LIPOPROTEIN DECREASED [None]
  - DIZZINESS [None]
  - CHILLS [None]
